FAERS Safety Report 9333123 (Version 1)
Quarter: 2013Q2

REPORT INFORMATION
  Report Type: Spontaneous
  Country: FR (occurrence: FR)
  Receive Date: 20130606
  Receipt Date: 20130606
  Transmission Date: 20140414
  Serious: Yes (Disabling)
  Sender: FDA-Public Use
  Company Number: FR-SANOFI-AVENTIS-2013SA054433

PATIENT
  Age: 57 Year
  Sex: Female

DRUGS (2)
  1. RIFADINE [Suspect]
     Indication: ANTIBIOTIC PROPHYLAXIS
     Route: 048
     Dates: start: 20080617, end: 200809
  2. RIMIFON [Suspect]
     Indication: ANTIBIOTIC PROPHYLAXIS
     Dosage: 350MG DAILY AND THEN 200 MG DAILY
     Route: 048
     Dates: start: 20080617, end: 200809

REACTIONS (10)
  - Upper respiratory tract irritation [Recovered/Resolved]
  - Eye pain [Not Recovered/Not Resolved]
  - Lacrimation increased [Not Recovered/Not Resolved]
  - Facial spasm [Not Recovered/Not Resolved]
  - Psoriasis [Not Recovered/Not Resolved]
  - Asthenia [Not Recovered/Not Resolved]
  - Alopecia [Not Recovered/Not Resolved]
  - Erythema [Not Recovered/Not Resolved]
  - Vomiting [Recovered/Resolved]
  - Abdominal pain upper [Recovered/Resolved]
